FAERS Safety Report 20885928 (Version 5)
Quarter: 2022Q4

REPORT INFORMATION
  Report Type: Report from Study
  Country: US (occurrence: US)
  Receive Date: 20220527
  Receipt Date: 20221005
  Transmission Date: 20230113
  Serious: Yes (Other)
  Sender: FDA-Public Use
  Company Number: US-NOVARTISTESTPH-NVSC2022US122442

PATIENT
  Sex: Female

DRUGS (3)
  1. PROMACTA [Suspect]
     Active Substance: ELTROMBOPAG OLAMINE
     Indication: Breast cancer
     Dosage: UNK
     Route: 048
  2. PROMACTA [Suspect]
     Active Substance: ELTROMBOPAG OLAMINE
     Dosage: 50 MG
     Route: 065
  3. PROMACTA [Suspect]
     Active Substance: ELTROMBOPAG OLAMINE
     Dosage: 25 MG
     Route: 065

REACTIONS (11)
  - Post procedural haemorrhage [Unknown]
  - Neuromyopathy [Not Recovered/Not Resolved]
  - Platelet count increased [Unknown]
  - Muscle spasms [Unknown]
  - Platelet count decreased [Unknown]
  - Fatigue [Unknown]
  - Muscular weakness [Unknown]
  - Asthenia [Unknown]
  - Hypertension [Unknown]
  - Headache [Unknown]
  - Product use in unapproved indication [Unknown]
